FAERS Safety Report 17198986 (Version 1)
Quarter: 2019Q4

REPORT INFORMATION
  Report Type: Report from Study
  Country: DE (occurrence: DE)
  Receive Date: 20191225
  Receipt Date: 20191225
  Transmission Date: 20200122
  Serious: Yes (Hospitalization, Other)
  Sender: FDA-Public Use
  Company Number: DE-SHIRE-DE201944115

PATIENT

DRUGS (1)
  1. HUMAN IMMUNOGLOBULIN; HYALURONIDASE [Suspect]
     Active Substance: HUMAN IMMUNOGLOBULIN G\HYALURONIDASE RECOMBINANT HUMAN
     Indication: ACUTE LYMPHOCYTIC LEUKAEMIA
     Dosage: 10 GRAM, 1X/2WKS
     Route: 058

REACTIONS (6)
  - Rash [Recovered/Resolved]
  - Pneumonia [Unknown]
  - Cystitis [Unknown]
  - Intentional product use issue [Unknown]
  - Chills [Recovered/Resolved]
  - Pyrexia [Recovered/Resolved]
